FAERS Safety Report 6232030-1 (Version None)
Quarter: 2009Q2

REPORT INFORMATION
  Report Type: 
  Country: None (occurrence: None)
  Receive Date: 20090616
  Receipt Date: 20090602
  Transmission Date: 20091009
  Serious: Yes (Life-Threatening, Hospitalization)
  Sender: FDA-Public Use
  Company Number: DE-GENENTECH-277079

PATIENT
  Sex: Female
  Weight: 70 kg

DRUGS (7)
  1. AVASTIN [Suspect]
     Indication: BREAST CANCER METASTATIC
     Dosage: 5 MG/KG, Q2W
     Route: 042
     Dates: start: 20070912, end: 20081229
  2. AVASTIN [Suspect]
     Dosage: 5 MG/KG, UNK
     Dates: start: 20090225
  3. XELODA [Suspect]
     Indication: BREAST CANCER METASTATIC
     Dosage: 1500 MG, BID
     Route: 065
     Dates: start: 20080416
  4. PANTOZOL [Concomitant]
     Indication: DRUG USE FOR UNKNOWN INDICATION
     Dosage: 20 MG, UNK
  5. BISOPROLOL [Concomitant]
     Indication: DRUG USE FOR UNKNOWN INDICATION
     Dosage: 5 MG, UNK
  6. PENTALONG [Concomitant]
     Indication: DRUG USE FOR UNKNOWN INDICATION
     Dosage: 80 MG, UNK
  7. LORZAAR [Concomitant]
     Indication: DRUG USE FOR UNKNOWN INDICATION
     Dosage: 50 MG, UNK

REACTIONS (1)
  - ILEUS PARALYTIC [None]
